FAERS Safety Report 10935730 (Version 2)
Quarter: 2015Q2

REPORT INFORMATION
  Report Type: Spontaneous
  Country: US (occurrence: US)
  Receive Date: 20150320
  Receipt Date: 20150520
  Transmission Date: 20150821
  Serious: Yes (Death, Other)
  Sender: FDA-Public Use
  Company Number: US-ASTRAZENECA-2014SE56424

PATIENT
  Age: 23635 Day
  Sex: Male

DRUGS (32)
  1. BYETTA [Suspect]
     Active Substance: EXENATIDE
     Indication: TYPE 2 DIABETES MELLITUS
     Dosage: UNK
     Route: 065
     Dates: start: 20121210
  2. JANUVIA [Suspect]
     Active Substance: SITAGLIPTIN PHOSPHATE
     Indication: TYPE 2 DIABETES MELLITUS
     Route: 048
     Dates: start: 20121121
  3. JANUVIA [Suspect]
     Active Substance: SITAGLIPTIN PHOSPHATE
     Indication: TYPE 2 DIABETES MELLITUS
     Dosage: EVERY MORNING
     Route: 048
     Dates: start: 20130124
  4. GEMZER [Concomitant]
  5. XARELTO [Concomitant]
     Active Substance: RIVAROXABAN
  6. TRICOR [Concomitant]
     Active Substance: FENOFIBRATE
     Dates: start: 20081125
  7. ASPIRIN. [Concomitant]
     Active Substance: ASPIRIN
  8. LEVITRA [Concomitant]
     Active Substance: VARDENAFIL HYDROCHLORIDE TRIHYDRATE
     Dates: start: 20081125
  9. AMBIEN [Concomitant]
     Active Substance: ZOLPIDEM TARTRATE
     Route: 048
     Dates: start: 20120809
  10. COUMADIN [Concomitant]
     Active Substance: WARFARIN SODIUM
  11. GABAPENTIN. [Concomitant]
     Active Substance: GABAPENTIN
     Dates: start: 20081125
  12. PROVENTIL [Concomitant]
     Active Substance: ALBUTEROL
     Dates: start: 20120809
  13. COREG [Concomitant]
     Active Substance: CARVEDILOL
     Route: 048
     Dates: start: 20120830
  14. AMARYL [Concomitant]
     Active Substance: GLIMEPIRIDE
     Route: 048
     Dates: start: 20120809
  15. NIASPAN [Concomitant]
     Active Substance: NIACIN
     Route: 048
     Dates: start: 20120809
  16. PRADAXA [Concomitant]
     Active Substance: DABIGATRAN ETEXILATE MESYLATE
     Route: 048
     Dates: start: 20120830
  17. JANUVIA [Suspect]
     Active Substance: SITAGLIPTIN PHOSPHATE
     Indication: TYPE 2 DIABETES MELLITUS
     Route: 048
     Dates: start: 20100805
  18. CRESTOR [Concomitant]
     Active Substance: ROSUVASTATIN CALCIUM
     Dates: start: 20081213
  19. LOVAZA [Concomitant]
     Active Substance: OMEGA-3-ACID ETHYL ESTERS
     Dates: start: 20090209
  20. VITAMIN C [Concomitant]
     Active Substance: ASCORBIC ACID
     Dates: start: 20120809
  21. OXYCONTIN [Concomitant]
     Active Substance: OXYCODONE HYDROCHLORIDE
     Route: 048
     Dates: start: 20120830
  22. XANAX [Concomitant]
     Active Substance: ALPRAZOLAM
     Route: 048
     Dates: start: 20120830
  23. BYETTA [Suspect]
     Active Substance: EXENATIDE
     Indication: TYPE 2 DIABETES MELLITUS
     Route: 058
     Dates: start: 20120809
  24. JANUVIA [Suspect]
     Active Substance: SITAGLIPTIN PHOSPHATE
     Indication: TYPE 2 DIABETES MELLITUS
     Route: 065
     Dates: start: 20100614
  25. GEMZAR [Concomitant]
     Active Substance: GEMCITABINE HYDROCHLORIDE
     Dates: start: 201208
  26. ALEVE [Concomitant]
     Active Substance: NAPROXEN SODIUM
     Dosage: TWO TIMES A DAY
     Route: 048
     Dates: start: 20120809
  27. BYETTA [Suspect]
     Active Substance: EXENATIDE
     Indication: TYPE 2 DIABETES MELLITUS
     Dosage: UNK
     Route: 065
     Dates: start: 20100614, end: 20121129
  28. LOVENOX [Concomitant]
     Active Substance: ENOXAPARIN SODIUM
  29. MICROZIDE [Concomitant]
     Active Substance: HYDROCHLOROTHIAZIDE
     Route: 048
     Dates: start: 20120809
  30. JANUVIA [Suspect]
     Active Substance: SITAGLIPTIN PHOSPHATE
     Indication: TYPE 2 DIABETES MELLITUS
     Dosage: UNK
     Route: 065
     Dates: start: 20110915, end: 20120630
  31. FLOMAX [Concomitant]
     Active Substance: TAMSULOSIN HYDROCHLORIDE
     Dosage: AT BEDTIME
     Route: 048
     Dates: start: 20120809
  32. VITAMIN E [Concomitant]
     Active Substance: .ALPHA.-TOCOPHEROL
     Dosage: EVERY MORNING
     Route: 048
     Dates: start: 20120809

REACTIONS (2)
  - Metastases to liver [Unknown]
  - Pancreatic carcinoma metastatic [Fatal]

NARRATIVE: CASE EVENT DATE: 20120727
